FAERS Safety Report 5389789-5 (Version None)
Quarter: 2007Q3

REPORT INFORMATION
  Report Type: 
  Country: None (occurrence: None)
  Receive Date: 20070717
  Receipt Date: 20070710
  Transmission Date: 20080115
  Serious: Yes (Hospitalization, Other)
  Sender: FDA-Public Use
  Company Number: US-ABBOTT-07P-163-0374317-00

PATIENT
  Age: 8 Year
  Sex: Male

DRUGS (11)
  1. ISOFLURANE [Suspect]
     Indication: STATUS ASTHMATICUS
     Route: 055
  2. MIDAZOLAM HCL [Concomitant]
     Indication: SEDATION
     Route: 042
  3. FENTANYL [Concomitant]
     Indication: SEDATION
     Route: 042
  4. SALBUTAMOL [Concomitant]
     Indication: ASTHMA
     Dosage: NOT REPORTED
  5. TERABUTAMINE [Concomitant]
     Indication: ASTHMA
     Dosage: NOT REPORTED
  6. ISOPRENALINE HCL [Concomitant]
     Indication: ASTHMA
     Dosage: NOT REPORTED
  7. MAGNESIUM SULFATE [Concomitant]
     Indication: ASTHMA
     Dosage: NOT REPORTED
  8. IPRATROPIUM BROMIDE [Concomitant]
     Indication: ASTHMA
     Dosage: NOT REPORTED
  9. METHYLPREDNISOLONE [Concomitant]
     Indication: ASTHMA
     Dosage: 2-4 MG/KG
     Route: 042
  10. DOPAMINE HCL IN 5% DEXTROSE [Concomitant]
     Indication: ASTHMA
     Dosage: NOT REPORTED
  11. KETAMINE HCL [Concomitant]
     Indication: ASTHMA
     Dosage: NOT REPORTED

REACTIONS (3)
  - DRUG WITHDRAWAL SYNDROME [None]
  - ENCEPHALOPATHY [None]
  - INCORRECT DRUG ADMINISTRATION DURATION [None]
